FAERS Safety Report 4892214-1 (Version None)
Quarter: 2006Q1

REPORT INFORMATION
  Report Type: 
  Country: None (occurrence: None)
  Receive Date: 20060125
  Receipt Date: 20060125
  Transmission Date: 20060701
  Serious: No
  Sender: FDA-Public Use
  Company Number: None

PATIENT
  Sex: Male

DRUGS (12)
  1. ENOXAPARIN SODIUM [Suspect]
     Indication: THROMBOSIS PROPHYLAXIS
     Dosage: 30MG , Q12H, SQ
     Route: 058
     Dates: start: 20050810, end: 20050819
  2. ESCITALOPRAM OXALATE [Concomitant]
  3. METOPROLOL [Concomitant]
  4. LANSOPRAZOLE [Concomitant]
  5. CLONIDINE [Concomitant]
  6. TEMAZEPAM [Concomitant]
  7. CEFAZOLIN [Concomitant]
  8. METOCLOPRAMIDE [Concomitant]
  9. HALDOL [Concomitant]
  10. PERCOCET [Concomitant]
  11. BISACODYL [Concomitant]
  12. MAALOX FAST BLOCKER [Concomitant]

REACTIONS (1)
  - HEPARIN-INDUCED THROMBOCYTOPENIA [None]
